FAERS Safety Report 25188750 (Version 2)
Quarter: 2025Q2

REPORT INFORMATION
  Report Type: Report from Study
  Country: US (occurrence: US)
  Receive Date: 20250411
  Receipt Date: 20250429
  Transmission Date: 20250716
  Serious: No
  Sender: IPSEN BIOPHARMACEUTICALS, INC.
  Company Number: US-IPSEN Group, Research and Development-2025-07816

PATIENT
  Age: 44 Year
  Sex: Female
  Weight: 63.5 kg

DRUGS (4)
  1. IQIRVO [Suspect]
     Active Substance: ELAFIBRANOR
     Indication: Primary biliary cholangitis
     Route: 048
     Dates: start: 20250219
  2. IBUPROFEN [Concomitant]
     Active Substance: IBUPROFEN
  3. URSODIOL [Concomitant]
     Active Substance: URSODIOL
  4. MUCINEX [Concomitant]
     Active Substance: GUAIFENESIN

REACTIONS (1)
  - Hepatic enzyme increased [Unknown]
